FAERS Safety Report 7941802-4 (Version None)
Quarter: 2011Q4

REPORT INFORMATION
  Report Type: 
  Country: None (occurrence: None)
  Receive Date: 20111122
  Receipt Date: 20111122
  Transmission Date: 20120403
  Serious: No
  Sender: FDA-Public Use
  Company Number: None

PATIENT
  Age: 64 Year
  Sex: Male
  Weight: 99.1 kg

DRUGS (2)
  1. SERTRALINE HYDROCHLORIDE [Suspect]
     Indication: ANXIETY
     Dosage: 200 MG EVERY DAY PO
     Route: 048
     Dates: start: 20110805, end: 20111028
  2. SERTRALINE HYDROCHLORIDE [Suspect]
     Indication: DEPRESSION
     Dosage: 200 MG EVERY DAY PO
     Route: 048
     Dates: start: 20110805, end: 20111028

REACTIONS (4)
  - SUICIDAL IDEATION [None]
  - NO THERAPEUTIC RESPONSE [None]
  - PRODUCT COLOUR ISSUE [None]
  - MOOD SWINGS [None]
